FAERS Safety Report 8524630-0 (Version None)
Quarter: 2012Q3

REPORT INFORMATION
  Report Type: 
  Country: None (occurrence: None)
  Receive Date: 20120720
  Receipt Date: 20120706
  Transmission Date: 20120928
  Serious: Yes (Hospitalization)
  Sender: FDA-Public Use
  Company Number: GB-ROCHE-1084916

PATIENT
  Age: 82 Year
  Sex: Female

DRUGS (11)
  1. DOUBLEBASE [Concomitant]
  2. LAXIDO [Concomitant]
  3. MOVELAT [Suspect]
     Indication: ARTHRITIS
     Route: 061
     Dates: start: 20120601, end: 20120601
  4. FOLIC ACID [Concomitant]
     Dates: start: 20120519
  5. CITALOPRAM HYDROBROMIDE [Concomitant]
  6. ACETAMINOPHEN AND CODEINE PHOSPHATE [Concomitant]
  7. ASPIRIN [Suspect]
     Indication: PRODUCT USED FOR UNKNOWN INDICATION
     Route: 048
  8. ALENDRONATE SODIUM [Concomitant]
  9. NAPROXEN [Suspect]
     Indication: ARTHRITIS
     Route: 048
     Dates: end: 20120617
  10. HYPROMELLOSE [Concomitant]
  11. OMEPRAZOLE [Concomitant]

REACTIONS (7)
  - GASTROINTESTINAL HAEMORRHAGE [None]
  - ABDOMINAL PAIN [None]
  - HAEMOGLOBIN DECREASED [None]
  - TROPONIN I INCREASED [None]
  - BRAIN NATRIURETIC PEPTIDE ABNORMAL [None]
  - CARDIAC FAILURE [None]
  - MYOCARDIAL INFARCTION [None]
